FAERS Safety Report 8997880 (Version 2)
Quarter: 2013Q3

REPORT INFORMATION
  Report Type: Spontaneous
  Country: FR (occurrence: FR)
  Receive Date: 20130104
  Receipt Date: 20130715
  Transmission Date: 20140515
  Serious: Yes (Hospitalization, Other)
  Sender: FDA-Public Use
  Company Number: PHHY2012FR122192

PATIENT
  Age: 80 Year
  Sex: Male

DRUGS (5)
  1. TAREG [Suspect]
     Dosage: 1 DF, UNK
     Route: 048
     Dates: end: 20121210
  2. CORDARONE [Suspect]
     Dosage: 1 DF, QD
     Dates: start: 201211, end: 20121210
  3. PREVISCAN [Suspect]
     Dosage: 1 DF, UNK
     Dates: start: 201211, end: 20121210
  4. SECTRAL [Suspect]
     Dates: start: 20121210, end: 20121210
  5. HEXAQUINE [Suspect]
     Dosage: 1 DF, QD
     Dates: start: 201201, end: 20121210

REACTIONS (3)
  - Hepatocellular injury [Recovered/Resolved]
  - Pyrexia [Unknown]
  - Abdominal pain [Unknown]
